FAERS Safety Report 7919718-9 (Version None)
Quarter: 2011Q4

REPORT INFORMATION
  Report Type: 
  Country: None (occurrence: None)
  Receive Date: 20111117
  Receipt Date: 20111111
  Transmission Date: 20120403
  Serious: Yes (Death)
  Sender: FDA-Public Use
  Company Number: US-CELGENEUS-163-21880-11082385

PATIENT
  Sex: Male

DRUGS (7)
  1. HYDROCODONE BITARTRATE AND ACETAMINOPHEN [Concomitant]
     Dosage: 10-500MG
     Route: 048
  2. DEXAMETHASONE [Concomitant]
     Dosage: 4 MILLIGRAM
     Route: 048
  3. IRON [Concomitant]
     Dosage: 50 MILLIGRAM
     Route: 048
  4. CUBICIN [Concomitant]
     Dosage: 500 MILLIGRAM
     Route: 065
  5. STOOL SOFTENER [Concomitant]
     Dosage: 240 MILLIGRAM
     Route: 048
  6. LASIX [Concomitant]
     Dosage: 40 MILLIGRAM
     Route: 048
  7. REVLIMID [Suspect]
     Indication: MULTIPLE MYELOMA

REACTIONS (1)
  - PULMONARY EMBOLISM [None]
